FAERS Safety Report 9220414 (Version 1)
Quarter: 2013Q1

REPORT INFORMATION
  Report Type: Spontaneous
  Country: US (occurrence: None)
  Receive Date: 20120830
  Receipt Date: 20120830
  Transmission Date: 20140127
  Serious: Yes (Other)
  Sender: FDA-Public Use
  Company Number: PHEH2011US009560

PATIENT
  Sex: Female

DRUGS (1)
  1. SANDOSTATIN [Suspect]

REACTIONS (2)
  - Neoplasm progression [None]
  - Serum serotonin increased [None]
